FAERS Safety Report 8591316-6 (Version None)
Quarter: 2012Q3

REPORT INFORMATION
  Report Type: 
  Country: None (occurrence: None)
  Receive Date: 20120731
  Receipt Date: 20120716
  Transmission Date: 20120928
  Serious: Yes (Hospitalization)
  Sender: FDA-Public Use
  Company Number: FK201202029

PATIENT
  Age: 48 Year
  Sex: Male
  Weight: 74 kg

DRUGS (7)
  1. MORAB-003 (FARLETUZUMAB) (FARLETUZUMAB) [Suspect]
     Indication: LUNG ADENOCARCINOMA
     Dosage: 7.5 MG/KG, INTRAVENOUS (NOT OTHERWISE SPECIFIED)
     Route: 042
     Dates: start: 20120208, end: 20120614
  2. FRAXIPARIN (HEPARIN-FRACTION, CALCIUM SALT) [Concomitant]
  3. PEMETREXED [Suspect]
     Indication: LUNG ADENOCARCINOMA
     Dosage: 420 MG/KG, INTRAVENOUS (NOT OTHERWISE SPECIFIED)
     Route: 042
     Dates: start: 20120208, end: 20120503
  4. CARBOPLATIN [Suspect]
     Indication: LUNG ADENOCARCINOMA
     Dosage: 420 MG/KG, INTRAVENOUS (NOT OTHERWISE SPECIFIED)
     Route: 042
     Dates: start: 20120208, end: 20120503
  5. FOLIC ACID [Concomitant]
  6. PANTOPRAZOLE [Concomitant]
  7. ACETAMINOPHEN [Concomitant]

REACTIONS (4)
  - HAEMOPTYSIS [None]
  - DISEASE PROGRESSION [None]
  - LUNG ADENOCARCINOMA [None]
  - RENAL FAILURE [None]
